FAERS Safety Report 4601726-7 (Version None)
Quarter: 2005Q1

REPORT INFORMATION
  Report Type: 
  Country: None (occurrence: None)
  Receive Date: 20050128
  Receipt Date: 20041101
  Transmission Date: 20050727
  Serious: No
  Sender: FDA-Public Use
  Company Number: WAES 0411USA00264

PATIENT
  Sex: Female

DRUGS (4)
  1. EMEND [Suspect]
     Indication: CHEMOTHERAPY
     Dosage: 125 MG/1X/PO
     Route: 048
  2. EMEND [Suspect]
     Indication: PROPHYLAXIS
     Dosage: 125 MG/1X/PO
     Route: 048
  3. TAXOTERE [Concomitant]
  4. DEXAMETHASONE [Concomitant]

REACTIONS (1)
  - HALLUCINATION [None]
